FAERS Safety Report 8626053-2 (Version None)
Quarter: 2012Q3

REPORT INFORMATION
  Report Type: 
  Country: None (occurrence: None)
  Receive Date: 20120827
  Receipt Date: 20120817
  Transmission Date: 20120928
  Serious: Yes (Other)
  Sender: FDA-Public Use
  Company Number: US-ABBOTT-12P-163-0902519-00

PATIENT
  Sex: Female
  Weight: 61.29 kg

DRUGS (21)
  1. PROBIOTIC [Concomitant]
     Indication: ROUTINE HEALTH MAINTENANCE
     Dates: start: 20110916
  2. IMURAN [Concomitant]
     Dates: start: 20120420, end: 20120525
  3. TYLENOL [Concomitant]
     Indication: PROCEDURAL PAIN
  4. CALCIUM + VITAMIN D [Concomitant]
     Indication: PRODUCT USED FOR UNKNOWN INDICATION
     Route: 048
     Dates: start: 20110916, end: 20120618
  5. MULTI-VITAMINS [Concomitant]
     Indication: PRODUCT USED FOR UNKNOWN INDICATION
  6. CALCIUM CARBONATE [Concomitant]
     Indication: DYSPEPSIA
     Dates: start: 20120110
  7. PREDNISONE TAB [Concomitant]
     Dates: start: 20120421, end: 20120618
  8. MULTI-VITAMINS [Concomitant]
     Indication: VITAMIN SUPPLEMENTATION
     Dates: start: 20110916
  9. CAFFEINE CITRATE [Concomitant]
     Indication: PRODUCT USED FOR UNKNOWN INDICATION
     Dates: start: 20110916, end: 20120618
  10. AZATHIOPRINE SODIUM [Concomitant]
     Indication: CROHN'S DISEASE
  11. PERCOCET [Concomitant]
     Indication: SURGERY
     Dates: start: 20120121, end: 20120207
  12. AMBIEN [Concomitant]
     Indication: INSOMNIA
  13. IMURAN [Concomitant]
     Indication: CROHN'S DISEASE
     Route: 048
     Dates: start: 20110916, end: 20120419
  14. PREDNISONE TAB [Concomitant]
  15. LIALDA [Concomitant]
     Indication: CROHN'S DISEASE
     Dates: start: 20110916
  16. FOLIC ACID [Concomitant]
     Indication: PRODUCT USED FOR UNKNOWN INDICATION
     Dates: start: 20110916, end: 20120618
  17. CAFFEINE CITRATE [Concomitant]
     Dosage: 1 SERVING
     Dates: start: 20110916, end: 20120618
  18. HUMIRA [Suspect]
     Indication: CROHN'S DISEASE
     Dates: start: 20120204
  19. PREDNISONE TAB [Concomitant]
     Indication: CROHN'S DISEASE
     Dates: start: 20110916, end: 20120420
  20. TYLENOL [Concomitant]
     Indication: HEADACHE
     Dates: start: 20110916
  21. AMBIEN [Concomitant]
     Indication: SURGERY
     Route: 048
     Dates: start: 20120121, end: 20120601

REACTIONS (9)
  - HEADACHE [None]
  - ANAL FISTULA [None]
  - BREECH PRESENTATION [None]
  - PROCTALGIA [None]
  - INJECTION SITE PAIN [None]
  - INJECTION SITE HAEMATOMA [None]
  - INJECTION SITE PRURITUS [None]
  - INJECTION SITE PAPULE [None]
  - ANAL FISSURE [None]
